FAERS Safety Report 9810741 (Version 1)
Quarter: 2014Q1

REPORT INFORMATION
  Report Type: Spontaneous
  Country: US (occurrence: US)
  Receive Date: 20140110
  Receipt Date: 20140110
  Transmission Date: 20141002
  Serious: Yes (Hospitalization)
  Sender: FDA-Public Use
  Company Number: US-SANOFI-AVENTIS-2012SA089586

PATIENT
  Age: 74 Year
  Sex: Female
  Weight: 81.2 kg

DRUGS (19)
  1. PLAVIX [Suspect]
     Indication: CORONARY ARTERY DISEASE
     Route: 048
     Dates: start: 200301, end: 20090321
  2. BLINDED THERAPY [Concomitant]
     Route: 048
     Dates: start: 20080416
  3. VITAMIN E [Concomitant]
     Indication: NUTRITIONAL SUPPLEMENTATION
     Route: 048
     Dates: start: 2005
  4. VITAMIN C [Concomitant]
     Indication: NUTRITIONAL SUPPLEMENTATION
     Route: 048
     Dates: start: 2005
  5. SELENIUM [Concomitant]
     Indication: NUTRITIONAL SUPPLEMENTATION
     Route: 048
     Dates: start: 2005
  6. CALCIUM CITRATE [Concomitant]
     Indication: NUTRITIONAL SUPPLEMENTATION
     Route: 048
     Dates: start: 2005
  7. MULTIVITAMINS [Concomitant]
     Indication: NUTRITIONAL SUPPLEMENTATION
     Route: 048
     Dates: start: 2005
  8. FOSAMAX [Concomitant]
     Indication: OSTEOPENIA
     Dosage: DOSE: 70/280IU
     Dates: start: 2002, end: 20090321
  9. TOPROL XL [Concomitant]
     Indication: HYPERTENSION
     Route: 048
     Dates: start: 200301, end: 20080916
  10. TOPROL XL [Concomitant]
     Indication: HYPERTENSION
     Route: 048
     Dates: start: 20080917
  11. VITAMIN B6 [Concomitant]
     Indication: NUTRITIONAL SUPPLEMENTATION
     Route: 048
     Dates: start: 2003, end: 20080410
  12. VITAMIN B6 [Concomitant]
     Indication: NUTRITIONAL SUPPLEMENTATION
     Route: 048
     Dates: start: 20080507
  13. VITAMIN B12 [Concomitant]
     Indication: NUTRITIONAL SUPPLEMENTATION
     Route: 048
     Dates: start: 2003, end: 20080410
  14. VITAMIN B12 [Concomitant]
     Indication: NUTRITIONAL SUPPLEMENTATION
     Route: 048
     Dates: start: 20080507, end: 20090310
  15. ATORVASTATIN [Concomitant]
     Indication: HYPERLIPIDAEMIA
     Route: 048
     Dates: start: 200404
  16. DOCUSATE SODIUM [Concomitant]
     Indication: CONSTIPATION
     Route: 048
     Dates: start: 2004, end: 20090324
  17. LUMIGAN [Concomitant]
     Indication: GLAUCOMA
     Dates: start: 20031029
  18. FLAXSEED OIL [Concomitant]
     Indication: NUTRITIONAL SUPPLEMENTATION
     Route: 048
     Dates: start: 200801
  19. FISH OIL [Concomitant]
     Route: 048
     Dates: start: 20081201

REACTIONS (1)
  - Gastrointestinal haemorrhage [Recovered/Resolved]
